FAERS Safety Report 9231967 (Version 1)
Quarter: 2013Q2

REPORT INFORMATION
  Report Type: Other
  Country: GB (occurrence: GB)
  Receive Date: 20130415
  Receipt Date: 20130415
  Transmission Date: 20140414
  Serious: Yes (Other)
  Sender: FDA-Public Use
  Company Number: GB-WATSON-2013-06279

PATIENT
  Age: 26 Year
  Sex: Female

DRUGS (1)
  1. PROPRANOLOL (WATSON LABORATORIES) [Suspect]
     Indication: ANXIETY
     Dosage: 160 MG, UNKNOWN
     Route: 048
     Dates: start: 20120501, end: 20130301

REACTIONS (1)
  - Hypoaesthesia [Recovered/Resolved]
